FAERS Safety Report 6157048-9 (Version None)
Quarter: 2009Q2

REPORT INFORMATION
  Report Type: 
  Country: None (occurrence: None)
  Receive Date: 20090413
  Receipt Date: 20090406
  Transmission Date: 20091009
  Serious: Yes (Other)
  Sender: FDA-Public Use
  Company Number: ABZJP-08-0552

PATIENT
  Age: 57 Year
  Sex: Female

DRUGS (2)
  1. ABRAXANE [Suspect]
     Indication: BREAST CANCER METASTATIC
     Dosage: 222 MG, INTRAVENOUS
     Route: 042
     Dates: start: 20080701, end: 20081211
  2. KETOPROFEN [Concomitant]

REACTIONS (2)
  - MACULAR HOLE [None]
  - VISION BLURRED [None]
